FAERS Safety Report 9160577 (Version 1)
Quarter: 2013Q1

REPORT INFORMATION
  Report Type: Spontaneous
  Country: US (occurrence: US)
  Receive Date: 20130313
  Receipt Date: 20130313
  Transmission Date: 20140127
  Serious: No
  Sender: FDA-Public Use
  Company Number: US-ABBOTT-12P-163-0988445-00

PATIENT
  Sex: Male
  Weight: 108.96 kg

DRUGS (2)
  1. DEPAKOTE [Suspect]
     Indication: MOOD SWINGS
  2. DEPAKOTE [Suspect]
     Indication: EUPHORIC MOOD

REACTIONS (6)
  - Drug dose omission [Unknown]
  - Overdose [Unknown]
  - Feeling abnormal [Recovered/Resolved]
  - Nightmare [Recovered/Resolved]
  - Insomnia [Unknown]
  - Abnormal dreams [Recovered/Resolved]
